FAERS Safety Report 20731018 (Version 1)
Quarter: 2022Q2

REPORT INFORMATION
  Report Type: Spontaneous
  Country: FR (occurrence: FR)
  Receive Date: 20220420
  Receipt Date: 20220420
  Transmission Date: 20220721
  Serious: Yes (Hospitalization)
  Sender: FDA-Public Use
  Company Number: None

PATIENT
  Sex: Male

DRUGS (1)
  1. BUPRENORPHINE [Suspect]
     Active Substance: BUPRENORPHINE
     Indication: Product used for unknown indication
     Dosage: UNK, NOT STATED
     Route: 064
     Dates: start: 202009, end: 20210419

REACTIONS (7)
  - Premature baby [Recovering/Resolving]
  - Neonatal hypoxia [Recovering/Resolving]
  - Low birth weight baby [Recovering/Resolving]
  - Respiratory distress [Recovered/Resolved]
  - Hypoventilation [Recovering/Resolving]
  - Withdrawal syndrome [Recovered/Resolved]
  - Foetal exposure during pregnancy [Recovered/Resolved with Sequelae]

NARRATIVE: CASE EVENT DATE: 20210419
